FAERS Safety Report 8905533 (Version 1)
Quarter: 2012Q4

REPORT INFORMATION
  Report Type: 
  Country: US (occurrence: US)
  Receive Date: 20121113
  Receipt Date: 20121113
  Transmission Date: 20130627
  Serious: Yes (Other)
  Sender: FDA-Public Use
  Company Number: US-PFIZER INC-2011US-47381

PATIENT
  Age: 66 Year
  Sex: Female
  Weight: 86 kg

DRUGS (5)
  1. CALAN SR [Suspect]
     Indication: HYPERTENSION
     Dosage: 240 mg, UNK
     Dates: start: 2006
  2. VERAPAMIL [Suspect]
     Indication: PALPITATION
     Dosage: 120 mg, UNK
  3. CORTISONE [Suspect]
     Indication: PALPITATION
     Dosage: 180 mg, UNK
  4. ARIMIDEX [Suspect]
     Indication: BREAST CANCER
     Dosage: UNK
     Route: 048
  5. LEVOTHYROXINE SODIUM [Concomitant]
     Dosage: UNK

REACTIONS (3)
  - Breast cancer [Unknown]
  - Ventricular extrasystoles [Unknown]
  - Drug ineffective [Unknown]
